FAERS Safety Report 8097186-7 (Version None)
Quarter: 2012Q1

REPORT INFORMATION
  Report Type: 
  Country: None (occurrence: None)
  Receive Date: 20120128
  Receipt Date: 20110714
  Transmission Date: 20120608
  Serious: No
  Sender: FDA-Public Use
  Company Number: US-ABBOTT-11P-163-0839372-00

PATIENT
  Age: 64 Year
  Sex: Female

DRUGS (7)
  1. PREDNISONE TAB [Concomitant]
     Indication: PRODUCT USED FOR UNKNOWN INDICATION
     Dosage: DAILY
     Route: 048
  2. PREDNISONE TAB [Concomitant]
  3. ARAVA [Concomitant]
     Indication: PRODUCT USED FOR UNKNOWN INDICATION
     Dosage: DAILY
     Route: 048
  4. SIMVASTATIN [Concomitant]
     Indication: BLOOD CHOLESTEROL INCREASED
  5. HUMIRA [Suspect]
     Indication: RHEUMATOID ARTHRITIS
     Dosage: EVERY DOSE
     Dates: start: 20110501, end: 20110501
  6. PRAVASTATIN [Concomitant]
     Indication: BLOOD CHOLESTEROL INCREASED
     Dosage: LOW DOSE
  7. NEXIUM [Concomitant]
     Indication: DYSPEPSIA

REACTIONS (10)
  - WOUND DRAINAGE [None]
  - PAIN IN EXTREMITY [None]
  - SKIN ATROPHY [None]
  - OPEN WOUND [None]
  - GAIT DISTURBANCE [None]
  - CONTUSION [None]
  - MUSCULOSKELETAL STIFFNESS [None]
  - TOOTH ABSCESS [None]
  - RHEUMATOID ARTHRITIS [None]
  - INJURY [None]
